FAERS Safety Report 9220637 (Version 1)
Quarter: 2013Q2

REPORT INFORMATION
  Report Type: Spontaneous
  Country: US (occurrence: US)
  Receive Date: 20130409
  Receipt Date: 20130409
  Transmission Date: 20140414
  Serious: No
  Sender: FDA-Public Use
  Company Number: US-UPSHER-SMITH LABORATORIES, INC.-12002242

PATIENT
  Age: 52 Year
  Sex: Male

DRUGS (4)
  1. PREVALITE [Suspect]
     Indication: BLOOD CHOLESTEROL INCREASED
     Dosage: 4 G, BID
     Route: 048
     Dates: start: 201208
  2. PREVALITE [Suspect]
     Indication: DIARRHOEA
  3. NEXIUM                             /01479302/ [Concomitant]
     Indication: GASTROOESOPHAGEAL REFLUX DISEASE
     Dosage: UNK
  4. ADVAIR [Concomitant]
     Indication: ASTHMA
     Dosage: UNK

REACTIONS (1)
  - Retching [Not Recovered/Not Resolved]
